FAERS Safety Report 4739658-6 (Version None)
Quarter: 2005Q3

REPORT INFORMATION
  Report Type: 
  Country: None (occurrence: None)
  Receive Date: 20050810
  Receipt Date: 20050420
  Transmission Date: 20060218
  Serious: No
  Sender: FDA-Public Use
  Company Number: US-GLAXOSMITHKLINE-A0555052A

PATIENT
  Age: 25 Year
  Sex: Female

DRUGS (1)
  1. PAXIL [Suspect]
     Dosage: 30MG PER DAY
     Route: 048
     Dates: start: 19991101, end: 20001101

REACTIONS (2)
  - SOMNOLENCE [None]
  - WEIGHT INCREASED [None]
